FAERS Safety Report 20951143 (Version 3)
Quarter: 2023Q4

REPORT INFORMATION
  Report Type: Spontaneous
  Country: JP (occurrence: JP)
  Receive Date: 20220613
  Receipt Date: 20231020
  Transmission Date: 20240110
  Serious: Yes (Other)
  Sender: FDA-Public Use
  Company Number: JP-PFIZER INC-202200779026

PATIENT
  Age: 53 Year
  Sex: Male
  Weight: 59.5 kg

DRUGS (1)
  1. INFLIXIMAB [Suspect]
     Active Substance: INFLIXIMAB
     Indication: Psoriatic arthropathy
     Dosage: UNK

REACTIONS (4)
  - Cerebral infarction [Recovering/Resolving]
  - Uveitis [Unknown]
  - Treatment failure [Unknown]
  - Rash [Unknown]
